FAERS Safety Report 10053421 (Version 2)
Quarter: 2014Q2

REPORT INFORMATION
  Report Type: Spontaneous
  Country: US (occurrence: US)
  Receive Date: 20140402
  Receipt Date: 20140402
  Transmission Date: 20141212
  Serious: Yes (Hospitalization, Disabling, Other)
  Sender: FDA-Public Use
  Company Number: US-MYLANLABS-2014S1007010

PATIENT
  Age: 41 Year
  Sex: Male
  Weight: 79.38 kg

DRUGS (1)
  1. FENTANYL TRANSDERMAL SYSTEM [Suspect]
     Indication: PAIN
     Dosage: CHANGES Q72H
     Route: 062
     Dates: start: 200811, end: 20090121

REACTIONS (9)
  - Road traffic accident [Recovered/Resolved]
  - Ankle fracture [Recovered/Resolved]
  - Panic attack [Not Recovered/Not Resolved]
  - Anxiety [Not Recovered/Not Resolved]
  - Arthralgia [Not Recovered/Not Resolved]
  - Insomnia [Not Recovered/Not Resolved]
  - Drug dependence [Recovered/Resolved]
  - Loss of consciousness [Recovered/Resolved]
  - Restless legs syndrome [Not Recovered/Not Resolved]
